FAERS Safety Report 5650368-3 (Version None)
Quarter: 2008Q1

REPORT INFORMATION
  Report Type: 
  Country: None (occurrence: None)
  Receive Date: 20080305
  Receipt Date: 20080221
  Transmission Date: 20080703
  Serious: Yes (Hospitalization, Disabling)
  Sender: FDA-Public Use
  Company Number: JP-BAYER-200711046BYL

PATIENT
  Age: 64 Year
  Sex: Female
  Weight: 51 kg

DRUGS (5)
  1. INTERFERON BETA-1B [Suspect]
     Indication: MULTIPLE SCLEROSIS
     Route: 058
     Dates: start: 20010901, end: 20030401
  2. MEDROL [Concomitant]
     Route: 048
  3. UBRETID [Concomitant]
     Route: 048
  4. TEGRETOL [Concomitant]
     Route: 048
  5. RIVOTRIL [Concomitant]
     Route: 048

REACTIONS (2)
  - OPTIC NEURITIS [None]
  - PYRAMIDAL TRACT SYNDROME [None]
